FAERS Safety Report 11149388 (Version 1)
Quarter: 2015Q2

REPORT INFORMATION
  Report Type: Spontaneous
  Country: US (occurrence: None)
  Receive Date: 20150528
  Receipt Date: 20150528
  Transmission Date: 20150821
  Serious: Yes (Disabling)
  Sender: FDA-Public Use
  Company Number: None

PATIENT
  Age: 85 Year
  Sex: Male
  Weight: 90.72 kg

DRUGS (8)
  1. OMEPRAZOLE. [Concomitant]
     Active Substance: OMEPRAZOLE
  2. GLIPIZIDE. [Concomitant]
     Active Substance: GLIPIZIDE
  3. ACETAMINOPHEN. [Concomitant]
     Active Substance: ACETAMINOPHEN
  4. PREDNISONE. [Concomitant]
     Active Substance: PREDNISONE
  5. CAPECITABINE 500MG TEVA [Suspect]
     Active Substance: CAPECITABINE
     Indication: PRODUCT USED FOR UNKNOWN INDICATION
     Dosage: 3 PILLS 2 AM, 1 PM
     Route: 048
     Dates: end: 20150504
  6. ATORVASTATIN [Concomitant]
     Active Substance: ATORVASTATIN
  7. D3 500 MG [Concomitant]
  8. CENTRUM SENIOR [Concomitant]

REACTIONS (1)
  - Platelet count decreased [None]

NARRATIVE: CASE EVENT DATE: 20150504
